FAERS Safety Report 9044633 (Version 1)
Quarter: 2013Q1

REPORT INFORMATION
  Report Type: Spontaneous
  Country: US (occurrence: US)
  Receive Date: 20130130
  Receipt Date: 20130130
  Transmission Date: 20140127
  Serious: No
  Sender: FDA-Public Use
  Company Number: US-BAYER-2013-010029

PATIENT
  Sex: Female

DRUGS (4)
  1. ALEVE CAPLET/TABLET,MIDOL EXTENDED RELIEF CAPLET [Suspect]
     Indication: MYALGIA
     Dosage: PRN - EVERY 8 HOURS
     Route: 048
  2. ALEVE CAPLET/TABLET,MIDOL EXTENDED RELIEF CAPLET [Suspect]
     Indication: HEADACHE
  3. CARAFATE [Concomitant]
  4. PEPCID [Concomitant]

REACTIONS (2)
  - Drug ineffective [None]
  - Headache [None]
